FAERS Safety Report 11063723 (Version 1)
Quarter: 2015Q2

REPORT INFORMATION
  Report Type: Report from Study
  Country: US (occurrence: US)
  Receive Date: 20150424
  Receipt Date: 20150424
  Transmission Date: 20150821
  Serious: Yes (Other)
  Sender: FDA-Public Use
  Company Number: US-SA-2015SA008122

PATIENT
  Age: 47 Year
  Sex: Female

DRUGS (1)
  1. AUBAGIO [Suspect]
     Active Substance: TERIFLUNOMIDE
     Indication: MULTIPLE SCLEROSIS
     Route: 048
     Dates: start: 20150116

REACTIONS (9)
  - Condition aggravated [Unknown]
  - Paraesthesia [Unknown]
  - Fall [Unknown]
  - Dizziness [Not Recovered/Not Resolved]
  - Constipation [Unknown]
  - Inflammation [Unknown]
  - Upper limb fracture [Unknown]
  - Memory impairment [Unknown]
  - Incontinence [Unknown]

NARRATIVE: CASE EVENT DATE: 2015
